FAERS Safety Report 7817311-X (Version None)
Quarter: 2011Q4

REPORT INFORMATION
  Report Type: 
  Country: None (occurrence: None)
  Receive Date: 20111017
  Receipt Date: 20111005
  Transmission Date: 20120403
  Serious: Yes (Other)
  Sender: FDA-Public Use
  Company Number: US-KINGPHARMUSA00001-K201101198

PATIENT

DRUGS (1)
  1. EMBEDA [Suspect]
     Indication: PAIN
     Dosage: 100 MG, TID
     Route: 048
     Dates: end: 20110301

REACTIONS (2)
  - SUICIDAL IDEATION [None]
  - PAIN [None]
